FAERS Safety Report 13498839 (Version 1)
Quarter: 2017Q2

REPORT INFORMATION
  Report Type: Spontaneous
  Country: US (occurrence: US)
  Receive Date: 20170429
  Receipt Date: 20170429
  Transmission Date: 20170830
  Serious: No
  Sender: FDA-Public Use
  Company Number: None

PATIENT
  Age: 4 Year
  Sex: Male
  Weight: 15.75 kg

DRUGS (1)
  1. MIRALAX [Suspect]
     Active Substance: POLYETHYLENE GLYCOL 3350
     Indication: CONSTIPATION
     Dosage: ?          QUANTITY:1 CAPFULS;?
     Route: 048

REACTIONS (6)
  - Product quality issue [None]
  - Aggression [None]
  - Pallor [None]
  - Anxiety [None]
  - Weight gain poor [None]
  - Anger [None]

NARRATIVE: CASE EVENT DATE: 20170218
